FAERS Safety Report 9909706 (Version 1)
Quarter: 2014Q1

REPORT INFORMATION
  Report Type: Spontaneous
  Country: US (occurrence: None)
  Receive Date: 20140218
  Receipt Date: 20140218
  Transmission Date: 20141002
  Serious: Yes (Other)
  Sender: FDA-Public Use
  Company Number: None

PATIENT
  Age: 57 Year
  Sex: Female
  Weight: 67.13 kg

DRUGS (2)
  1. AGE DEFENSE SHEER BROAD SPECTRUM SPF 110 WALGREENS CO. [Suspect]
     Indication: SKIN DISORDER
     Route: 061
     Dates: start: 20140205, end: 20140205
  2. AGE DEFENSE SHEER BROAD SPECTRUM SPF 110 WALGREENS CO. [Suspect]
     Indication: PROPHYLAXIS
     Route: 061
     Dates: start: 20140205, end: 20140205

REACTIONS (5)
  - Erythema [None]
  - Skin disorder [None]
  - Pruritus [None]
  - Rash [None]
  - Drug hypersensitivity [None]
